FAERS Safety Report 13468851 (Version 6)
Quarter: 2017Q3

REPORT INFORMATION
  Report Type: Spontaneous
  Country: US (occurrence: US)
  Receive Date: 20170421
  Receipt Date: 20170817
  Transmission Date: 20171127
  Serious: Yes (Other)
  Sender: FDA-Public Use
  Company Number: US-ALEXION-A201704014

PATIENT
  Sex: Female

DRUGS (2)
  1. STRENSIQ [Suspect]
     Active Substance: ASFOTASE ALFA
     Indication: HYPOPHOSPHATASIA
     Dosage: UNK, TIW
     Route: 058
     Dates: start: 20160220
  2. STRENSIQ [Suspect]
     Active Substance: ASFOTASE ALFA
     Dosage: UNK, TIW
     Route: 058

REACTIONS (7)
  - Pain in extremity [Unknown]
  - Contusion [Unknown]
  - Fatigue [Unknown]
  - Arthralgia [Unknown]
  - Foot fracture [Unknown]
  - Walking disability [Unknown]
  - Pain [Unknown]

NARRATIVE: CASE EVENT DATE: 20170411
